FAERS Safety Report 7629198-9 (Version None)
Quarter: 2011Q3

REPORT INFORMATION
  Report Type: 
  Country: None (occurrence: None)
  Receive Date: 20110722
  Receipt Date: 20110715
  Transmission Date: 20111222
  Serious: Yes (Death, Other)
  Sender: FDA-Public Use
  Company Number: PHHY2011DE48617

PATIENT
  Sex: Female
  Weight: 80 kg

DRUGS (7)
  1. CALCIUM ACETATE [Concomitant]
     Indication: RENAL FAILURE
     Dosage: 1.5 G, QD
     Route: 048
     Dates: start: 20100701
  2. FUROSEMIDE [Concomitant]
     Indication: CARDIAC FAILURE
     Dosage: 80 MG, QD
     Route: 048
     Dates: start: 20090701
  3. ALISKIREN [Suspect]
     Indication: HYPERTENSION
     Dosage: 150 MG PER DAY
     Route: 048
     Dates: start: 20090227, end: 20100615
  4. BICANORM [Concomitant]
     Indication: RENAL FAILURE
     Dosage: 3 G, QD
     Route: 048
     Dates: start: 20090201
  5. VALSARTAN [Suspect]
     Indication: HYPERTENSION
     Dosage: 80 MG, QD
     Route: 048
     Dates: start: 20060501
  6. BETA BLOCKING AGENTS [Concomitant]
  7. PLATELETS [Concomitant]
     Dosage: UNK

REACTIONS (7)
  - AORTIC VALVE INCOMPETENCE [None]
  - CARDIAC FAILURE [None]
  - ATRIAL FIBRILLATION [None]
  - RENAL FAILURE CHRONIC [None]
  - MITRAL VALVE INCOMPETENCE [None]
  - GENERALISED OEDEMA [None]
  - SEPSIS [None]
